FAERS Safety Report 4290233-X (Version None)
Quarter: 2004Q1

REPORT INFORMATION
  Report Type: 
  Country: None (occurrence: None)
  Receive Date: 20040126
  Receipt Date: 20030904
  Transmission Date: 20041129
  Serious: No
  Sender: FDA-Public Use
  Company Number: USA030536369

PATIENT
  Age: 58 Year
  Sex: Female
  Weight: 48 kg

DRUGS (10)
  1. FORTEO [Suspect]
     Indication: OSTEOPOROSIS
     Dosage: 20 UG/DAY
     Dates: start: 20030401
  2. DANOCRINE (DANAZOL) [Concomitant]
  3. GUANFACINE HCL [Concomitant]
  4. PAXIL [Concomitant]
  5. PREMARIN [Concomitant]
  6. VALTREX [Concomitant]
  7. METHYLPREDNISOLONE [Concomitant]
  8. CLIMARA [Concomitant]
  9. DIOVAN [Concomitant]
  10. LORAZEPAM [Concomitant]

REACTIONS (7)
  - DIZZINESS [None]
  - FATIGUE [None]
  - HYPERTENSION [None]
  - INJECTION SITE ERYTHEMA [None]
  - INJECTION SITE STINGING [None]
  - NAUSEA [None]
  - RASH [None]
